FAERS Safety Report 17549709 (Version 3)
Quarter: 2020Q3

REPORT INFORMATION
  Report Type: Spontaneous
  Country: US (occurrence: US)
  Receive Date: 20200317
  Receipt Date: 20200717
  Transmission Date: 20201102
  Serious: Yes (Other)
  Sender: FDA-Public Use
  Company Number: US-JNJFOC-20200319174

PATIENT
  Sex: Female
  Weight: 70.37 kg

DRUGS (1)
  1. REMICADE [Suspect]
     Active Substance: INFLIXIMAB
     Indication: RHEUMATOID ARTHRITIS
     Route: 042
     Dates: start: 2009, end: 201309

REACTIONS (2)
  - Rheumatoid arthritis [Unknown]
  - Therapeutic product effect decreased [Unknown]
